FAERS Safety Report 9115052 (Version 1)
Quarter: 2013Q1

REPORT INFORMATION
  Report Type: Spontaneous
  Country: US (occurrence: US)
  Receive Date: 20130225
  Receipt Date: 20130225
  Transmission Date: 20140127
  Serious: Yes (Other)
  Sender: FDA-Public Use
  Company Number: US-COVIDIEN/TYCO HEALTHCARE/MALLINCKRODT-T201204557

PATIENT
  Sex: Female

DRUGS (2)
  1. GABLOFEN [Suspect]
     Indication: MUSCLE SPASTICITY
     Dosage: 600 MCG/DAY
  2. GABLOFEN [Suspect]
     Dosage: 900+ MCG/DAY
     Route: 037

REACTIONS (3)
  - Drug withdrawal syndrome [None]
  - Respiratory disorder [Unknown]
  - Muscle tightness [Unknown]
